FAERS Safety Report 6678046-2 (Version None)
Quarter: 2010Q2

REPORT INFORMATION
  Report Type: 
  Country: None (occurrence: None)
  Receive Date: 20100412
  Receipt Date: 20100330
  Transmission Date: 20101027
  Serious: Yes (Other)
  Sender: FDA-Public Use
  Company Number: PHHY2010US18455

PATIENT
  Sex: Female
  Weight: 70.3 kg

DRUGS (1)
  1. ZOMETA [Suspect]
     Indication: METASTASES TO BONE
     Dosage: 4 MG/5 ML
     Route: 042
     Dates: start: 20091201

REACTIONS (10)
  - DEBRIDEMENT [None]
  - ESCHAR [None]
  - INFUSION SITE ERYTHEMA [None]
  - INFUSION SITE INDURATION [None]
  - INFUSION SITE NECROSIS [None]
  - INJECTION SITE FIBROSIS [None]
  - INJECTION SITE INFECTION [None]
  - INJECTION SITE INFLAMMATION [None]
  - INJECTION SITE INJURY [None]
  - SOFT TISSUE INFLAMMATION [None]
